FAERS Safety Report 17054592 (Version 1)
Quarter: 2019Q4

REPORT INFORMATION
  Report Type: Spontaneous
  Country: GB (occurrence: ES)
  Receive Date: 20191120
  Receipt Date: 20191120
  Transmission Date: 20200122
  Serious: Yes (Hospitalization)
  Sender: FDA-Public Use
  Company Number: ES-BAYER-2019-201837

PATIENT
  Age: 78 Year
  Sex: Male

DRUGS (2)
  1. BAYCIP 500 MG [Suspect]
     Active Substance: CIPROFLOXACIN
     Indication: URINARY TRACT INFECTION
     Dosage: 500 MG, UNK
     Route: 048
     Dates: start: 20190911, end: 20190927
  2. SIMVASTATINA [Interacting]
     Active Substance: SIMVASTATIN
     Indication: DYSLIPIDAEMIA
     Dosage: 40 MG, UNK
     Route: 048
     Dates: start: 20190620, end: 20191004

REACTIONS (2)
  - Rhabdomyolysis [Recovered/Resolved]
  - Drug interaction [None]

NARRATIVE: CASE EVENT DATE: 2019
